FAERS Safety Report 21585864 (Version 1)
Quarter: 2022Q4

REPORT INFORMATION
  Report Type: Spontaneous
  Country: MX (occurrence: MX)
  Receive Date: 20221111
  Receipt Date: 20221111
  Transmission Date: 20230113
  Serious: Yes (Hospitalization)
  Sender: FDA-Public Use
  Company Number: MX-BoehringerIngelheim-2022-BI-201926

PATIENT
  Sex: Male

DRUGS (1)
  1. OFEV [Suspect]
     Active Substance: NINTEDANIB
     Indication: Product used for unknown indication
     Dates: start: 20221105

REACTIONS (4)
  - Vomiting [Unknown]
  - Dyspnoea [Unknown]
  - Disease progression [Unknown]
  - Nausea [Unknown]
